FAERS Safety Report 13093156 (Version 5)
Quarter: 2017Q1

REPORT INFORMATION
  Report Type: Spontaneous
  Country: SG (occurrence: SG)
  Receive Date: 20170106
  Receipt Date: 20170209
  Transmission Date: 20170428
  Serious: Yes (Death, Other)
  Sender: FDA-Public Use
  Company Number: SG-JNJFOC-20170101835

PATIENT
  Sex: Male

DRUGS (13)
  1. COTRIMOXAZOLE [Concomitant]
     Active Substance: SULFAMETHOXAZOLE\TRIMETHOPRIM
  2. DARATUMUMAB [Suspect]
     Active Substance: DARATUMUMAB
     Indication: PLASMA CELL MYELOMA
     Dosage: 400MG AND 100MG VIALS
     Route: 042
     Dates: start: 20161201, end: 20161213
  3. ACYCLOVIR. [Concomitant]
     Active Substance: ACYCLOVIR
  4. EZETIMIBE. [Concomitant]
     Active Substance: EZETIMIBE
  5. ALPRAZOLAM. [Concomitant]
     Active Substance: ALPRAZOLAM
  6. PARACETAMOL [Concomitant]
     Active Substance: ACETAMINOPHEN
  7. OMEPRAZOLE. [Concomitant]
     Active Substance: OMEPRAZOLE
  8. TRIMETAZIDINE [Concomitant]
     Active Substance: TRIMETAZIDINE
  9. CALCIUM CARBONATE AND VITAMIN D [Concomitant]
     Active Substance: CALCIUM CARBONATE\VITAMIN D
  10. ASPIRIN. [Concomitant]
     Active Substance: ASPIRIN
  11. DEXAMETHASONE. [Concomitant]
     Active Substance: DEXAMETHASONE
  12. FENOFIBRATE. [Concomitant]
     Active Substance: FENOFIBRATE
  13. ATORVASTATIN [Concomitant]
     Active Substance: ATORVASTATIN

REACTIONS (5)
  - Pneumonia [Fatal]
  - Anaemia [Unknown]
  - Confusional state [Unknown]
  - Disease progression [Fatal]
  - Sepsis [Fatal]
